FAERS Safety Report 10512409 (Version 3)
Quarter: 2014Q4

REPORT INFORMATION
  Report Type: Spontaneous
  Country: IE (occurrence: IE)
  Receive Date: 20141010
  Receipt Date: 20141202
  Transmission Date: 20150528
  Serious: Yes (Life-Threatening, Other)
  Sender: FDA-Public Use
  Company Number: IE-ABBVIE-14K-229-1292752-00

PATIENT
  Age: 71 Year
  Sex: Female
  Weight: 80.7 kg

DRUGS (3)
  1. ATENOLOL. [Concomitant]
     Active Substance: ATENOLOL
     Indication: HYPERTENSION
     Route: 048
  2. HUMIRA [Suspect]
     Active Substance: ADALIMUMAB
     Indication: PSORIASIS
     Route: 058
     Dates: start: 20140327, end: 201407
  3. URSOFALK [Concomitant]
     Active Substance: URSODIOL
     Indication: BILIARY CIRRHOSIS PRIMARY
     Route: 048

REACTIONS (1)
  - Invasive ductal breast carcinoma [Not Recovered/Not Resolved]

NARRATIVE: CASE EVENT DATE: 20140901
